FAERS Safety Report 21252981 (Version 3)
Quarter: 2024Q1

REPORT INFORMATION
  Report Type: Spontaneous
  Country: US (occurrence: US)
  Receive Date: 20220825
  Receipt Date: 20240312
  Transmission Date: 20240410
  Serious: Yes (Other)
  Sender: FDA-Public Use
  Company Number: US-PFIZER INC-PV202200049338

PATIENT
  Age: 75 Year
  Sex: Male

DRUGS (2)
  1. XELJANZ [Suspect]
     Active Substance: TOFACITINIB CITRATE
     Dosage: 10 MG
  2. XELJANZ [Suspect]
     Active Substance: TOFACITINIB CITRATE
     Dosage: 22 MG

REACTIONS (3)
  - Colitis ulcerative [Unknown]
  - Blindness [Unknown]
  - COVID-19 [Unknown]

NARRATIVE: CASE EVENT DATE: 19790101
